FAERS Safety Report 5957052-7 (Version None)
Quarter: 2008Q4

REPORT INFORMATION
  Report Type: 
  Country: None (occurrence: None)
  Receive Date: 20081118
  Receipt Date: 20081105
  Transmission Date: 20090506
  Serious: No
  Sender: FDA-Public Use
  Company Number: A0752447A

PATIENT
  Sex: Female

DRUGS (2)
  1. COREG CR [Suspect]
     Route: 065
  2. UNSPECIFIED MEDICATION [Concomitant]

REACTIONS (3)
  - ADVERSE DRUG REACTION [None]
  - DIZZINESS [None]
  - NAUSEA [None]
